FAERS Safety Report 4633954-9 (Version None)
Quarter: 2005Q2

REPORT INFORMATION
  Report Type: 
  Country: None (occurrence: None)
  Receive Date: 20050412
  Receipt Date: 20050412
  Transmission Date: 20051028
  Serious: No
  Sender: FDA-Public Use
  Company Number: None

PATIENT
  Sex: Female
  Weight: 73.8 kg

DRUGS (1)
  1. CISPLATIN [Suspect]
     Dosage: 100 MG/M ON DAYS 1 AND 22.
     Dates: start: 20050328

REACTIONS (5)
  - ABDOMINAL PAIN [None]
  - BLOOD POTASSIUM DECREASED [None]
  - NECK PAIN [None]
  - SCIATICA [None]
  - VOMITING [None]
